FAERS Safety Report 5725813-5 (Version None)
Quarter: 2008Q2

REPORT INFORMATION
  Report Type: 
  Country: None (occurrence: None)
  Receive Date: 20080429
  Receipt Date: 20080418
  Transmission Date: 20081010
  Serious: Yes (Hospitalization)
  Sender: FDA-Public Use
  Company Number: CC08-268

PATIENT
  Age: 17 Year
  Sex: Female

DRUGS (1)
  1. ALBUTEROL [Suspect]
     Indication: ASTHMA
     Dosage: 2 ACTUATIONS AS NEEDED

REACTIONS (4)
  - HEADACHE [None]
  - PYREXIA [None]
  - THROAT IRRITATION [None]
  - THROAT TIGHTNESS [None]
